FAERS Safety Report 18097938 (Version 1)
Quarter: 2020Q3

REPORT INFORMATION
  Report Type: Spontaneous
  Country: BR (occurrence: BR)
  Receive Date: 20200731
  Receipt Date: 20200731
  Transmission Date: 20201103
  Serious: Yes (Life-Threatening, Hospitalization, Other)
  Sender: FDA-Public Use
  Company Number: BR-STRIDES ARCOLAB LIMITED-2020SP008687

PATIENT
  Age: 37 Year
  Sex: Female

DRUGS (2)
  1. LAMOTRIGINE. [Suspect]
     Active Substance: LAMOTRIGINE
     Indication: NEURALGIA
     Dosage: UNK
     Route: 065
  2. IBUPROFEN. [Suspect]
     Active Substance: IBUPROFEN
     Indication: PRODUCT USED FOR UNKNOWN INDICATION
     Dosage: UNK
     Route: 065

REACTIONS (11)
  - Lip disorder [Recovered/Resolved]
  - Target skin lesion [Unknown]
  - Dermatitis bullous [Recovered/Resolved]
  - Lymphadenopathy [Unknown]
  - Skin hyperpigmentation [Unknown]
  - Epidermolysis bullosa [Unknown]
  - Scar [Unknown]
  - Adhesion [Recovered/Resolved]
  - Toxic epidermal necrolysis [Recovered/Resolved]
  - Lip pain [Unknown]
  - Pruritus [Unknown]
